FAERS Safety Report 9969655 (Version 1)
Quarter: 2014Q1

REPORT INFORMATION
  Report Type: Spontaneous
  Country: US (occurrence: None)
  Receive Date: 20140304
  Receipt Date: 20140304
  Transmission Date: 20141002
  Serious: Yes (Hospitalization, Other)
  Sender: FDA-Public Use
  Company Number: 7270506

PATIENT
  Age: 77 Year
  Sex: Female
  Weight: 84 kg

DRUGS (9)
  1. LEVOTHYROXINE [Suspect]
     Indication: PRODUCT USED FOR UNKNOWN INDICATION
     Route: 048
  2. ALLOPURINOL (ALLOPURINOL) [Suspect]
     Indication: PRODUCT USED FOR UNKNOWN INDICATION
     Route: 048
  3. DILTIAZEM CD [Suspect]
     Indication: PRODUCT USED FOR UNKNOWN INDICATION
     Route: 048
  4. FAMOTIDINE (FAMOTIDINE) [Suspect]
     Indication: PRODUCT USED FOR UNKNOWN INDICATION
     Route: 048
  5. FUROSEMIDE (FUROSEMIDE) [Suspect]
     Indication: PRODUCT USED FOR UNKNOWN INDICATION
     Route: 048
  6. PAROXETINE (PAROXETINE) [Suspect]
     Indication: PRODUCT USED FOR UNKNOWN INDICATION
     Route: 048
  7. WARFARIN (WARFARIN) [Suspect]
     Indication: PRODUCT USED FOR UNKNOWN INDICATION
  8. LEVOFLOXACIN (LEVOFLOXACIN) [Suspect]
     Indication: DIVERTICULITIS
     Route: 042
  9. METRONIDAZOLE (METRONIDAZOLE) [Suspect]
     Indication: DIVERTICULITIS
     Dosage: 500 MG, 1 IN 8 HR, INTRAVENOUS

REACTIONS (9)
  - Diverticulitis [None]
  - Renal failure [None]
  - International normalised ratio increased [None]
  - Dyskinesia [None]
  - Abdominal pain [None]
  - Leukocytosis [None]
  - Muscle twitching [None]
  - Muscle spasms [None]
  - Grimacing [None]
